FAERS Safety Report 24633975 (Version 1)
Quarter: 2024Q4

REPORT INFORMATION
  Report Type: Report from Study
  Country: CN (occurrence: CN)
  Receive Date: 20241118
  Receipt Date: 20241118
  Transmission Date: 20250115
  Serious: Yes (Death)
  Sender: ROCHE
  Company Number: CN-ROCHE-10000134351

PATIENT
  Age: 60 Year
  Sex: Female
  Weight: 50 kg

DRUGS (1)
  1. POLIVY [Suspect]
     Active Substance: POLATUZUMAB VEDOTIN-PIIQ
     Indication: Diffuse large B-cell lymphoma
     Dosage: LYOPHILIZED DOSAGE FORM 30 MG/VIAL
     Route: 042
     Dates: start: 20240903, end: 20241018

REACTIONS (1)
  - Death [Fatal]

NARRATIVE: CASE EVENT DATE: 20241114
